FAERS Safety Report 4572423-1 (Version None)
Quarter: 2005Q1

REPORT INFORMATION
  Report Type: 
  Country: None (occurrence: None)
  Receive Date: 20050207
  Receipt Date: 20050124
  Transmission Date: 20050727
  Serious: Yes (Death)
  Sender: FDA-Public Use
  Company Number: ZA-GLAXOSMITHKLINE-B0367405A

PATIENT
  Age: 29 Year
  Sex: Female
  Weight: 63 kg

DRUGS (3)
  1. COMBIVIR [Suspect]
     Indication: SYSTEMIC ANTIVIRAL TREATMENT
     Dosage: 300MG TWICE PER DAY
     Route: 048
     Dates: start: 20030804, end: 20030912
  2. HERBAL MEDICATION [Suspect]
  3. NEVIRAPINE [Concomitant]
     Indication: DEATH
     Dosage: 200MG TWICE PER DAY
     Route: 048
     Dates: start: 20030804, end: 20030913

REACTIONS (8)
  - ANAEMIA [None]
  - ASPARTATE AMINOTRANSFERASE INCREASED [None]
  - DISSEMINATED INTRAVASCULAR COAGULATION [None]
  - DYSPNOEA [None]
  - HYPOVOLAEMIC SHOCK [None]
  - PNEUMOCYSTIS JIROVECI PNEUMONIA [None]
  - PNEUMONIA [None]
  - RENAL FAILURE ACUTE [None]
